FAERS Safety Report 5919426-X (Version None)
Quarter: 2008Q4

REPORT INFORMATION
  Report Type: 
  Country: None (occurrence: None)
  Receive Date: 20081015
  Receipt Date: 20081008
  Transmission Date: 20090506
  Serious: Yes (Hospitalization)
  Sender: FDA-Public Use
  Company Number: DE-ASTRAZENECA-2008PK02056

PATIENT
  Age: 69 Year
  Sex: Female
  Weight: 72 kg

DRUGS (3)
  1. SEROQUEL XR [Suspect]
     Indication: SCHIZOPHRENIA, PARANOID TYPE
     Route: 048
     Dates: start: 20080806, end: 20080916
  2. SEROQUEL XR [Suspect]
     Route: 048
     Dates: start: 20080903
  3. GLIANIMON [Concomitant]
     Route: 048
     Dates: end: 20080916

REACTIONS (2)
  - HAEMATEMESIS [None]
  - HEPATIC ENZYME INCREASED [None]
